FAERS Safety Report 7672688-3 (Version None)
Quarter: 2011Q3

REPORT INFORMATION
  Report Type: 
  Country: None (occurrence: None)
  Receive Date: 20110809
  Receipt Date: 20110801
  Transmission Date: 20111222
  Serious: Yes (Other)
  Sender: FDA-Public Use
  Company Number: PHHY2011FR70799

PATIENT
  Age: 69 Year
  Sex: Female

DRUGS (1)
  1. CEFUROXIME [Suspect]
     Indication: CATARACT OPERATION
     Dosage: UNK

REACTIONS (11)
  - MACULAR OEDEMA [None]
  - RETINAL DETACHMENT [None]
  - ANTERIOR CHAMBER FIBRIN [None]
  - VISUAL ACUITY REDUCED [None]
  - INCORRECT DOSE ADMINISTERED [None]
  - OCULAR TOXICITY [None]
  - CORNEAL DYSTROPHY [None]
  - ANTERIOR CHAMBER INFLAMMATION [None]
  - CORNEAL OEDEMA [None]
  - VITREOUS DISORDER [None]
  - RETINAL DISORDER [None]
